FAERS Safety Report 7707399-9 (Version None)
Quarter: 2011Q3

REPORT INFORMATION
  Report Type: 
  Country: None (occurrence: None)
  Receive Date: 20110824
  Receipt Date: 20101215
  Transmission Date: 20111222
  Serious: Yes (Other)
  Sender: FDA-Public Use
  Company Number: CN-BAYER-201046316GPV

PATIENT
  Age: 30 Year
  Sex: Female

DRUGS (1)
  1. YASMIN [Suspect]
     Indication: CONTRACEPTION
     Dosage: DAILY DOSE 3.03 MG
     Route: 048
     Dates: start: 20100907

REACTIONS (3)
  - BREAST ENLARGEMENT [None]
  - GASTRIC DILATATION [None]
  - BODY TEMPERATURE INCREASED [None]
